FAERS Safety Report 13051541 (Version 5)
Quarter: 2018Q2

REPORT INFORMATION
  Report Type: Spontaneous
  Country: DE (occurrence: DE)
  Receive Date: 20161221
  Receipt Date: 20180628
  Transmission Date: 20180711
  Serious: Yes (Death, Hospitalization, Other)
  Sender: FDA-Public Use
  Company Number: DE-SA-2014SA152481

PATIENT
  Age: 56 Year
  Sex: Male

DRUGS (8)
  1. CISPLATIN. [Suspect]
     Active Substance: CISPLATIN
     Indication: SEMINOMA
     Dosage: UNK UNK,QCY; 2 DOSES WITH 20 MG/M2, 1 DOSE WITH 10 MG/M2
     Route: 042
     Dates: start: 20120416, end: 20120428
  2. ACETYLSALICYLIC ACID [Suspect]
     Active Substance: ASPIRIN
     Indication: ANTIPLATELET THERAPY
     Dosage: UNK UNK,UNK
     Route: 065
  3. BLEOMYCIN [Suspect]
     Active Substance: BLEOMYCIN SULFATE
     Indication: SEMINOMA
     Dosage: UNK UNK,QCY
     Route: 065
  4. CLOPIDOGREL BISULFATE. [Suspect]
     Active Substance: CLOPIDOGREL BISULFATE
     Indication: ANTIPLATELET THERAPY
     Dosage: UNK UNK,UNK
     Route: 065
  5. ETOPOSIDE. [Suspect]
     Active Substance: ETOPOSIDE
     Indication: TESTICULAR GERM CELL CANCER METASTATIC
     Dosage: UNK
  6. CISPLATIN. [Suspect]
     Active Substance: CISPLATIN
     Indication: TESTICULAR GERM CELL CANCER METASTATIC
     Dosage: UNK
  7. BLEOMYCIN [Suspect]
     Active Substance: BLEOMYCIN SULFATE
     Indication: TESTICULAR GERM CELL CANCER METASTATIC
  8. ETOPOSIDE. [Suspect]
     Active Substance: ETOPOSIDE
     Indication: SEMINOMA
     Dosage: UNK UNK,QC; 2 DOSES WITH 100 MG/M2, 1 DOSE WITH 50 MG/M2
     Route: 042
     Dates: start: 20120416, end: 20120428

REACTIONS (14)
  - Cerebral artery stenosis [Unknown]
  - Dysarthria [Fatal]
  - Thrombocytopenia [Unknown]
  - Subdural haemorrhage [Not Recovered/Not Resolved]
  - Facial paralysis [Fatal]
  - Cerebral artery stenosis [Fatal]
  - Hemiparesis [Fatal]
  - Hemiplegia [Unknown]
  - Cerebral microhaemorrhage [Not Recovered/Not Resolved]
  - Hemiplegia [Unknown]
  - Brain oedema [Fatal]
  - Cerebral infarction [Fatal]
  - Cerebral artery occlusion [Fatal]
  - Ischaemic cerebral infarction [Fatal]

NARRATIVE: CASE EVENT DATE: 2012
